FAERS Safety Report 23123592 (Version 3)
Quarter: 2024Q1

REPORT INFORMATION
  Report Type: Spontaneous
  Country: FR (occurrence: FR)
  Receive Date: 20231030
  Receipt Date: 20240130
  Transmission Date: 20240410
  Serious: Yes (Other)
  Sender: FDA-Public Use
  Company Number: FR-Accord-386700

PATIENT
  Age: 63 Year
  Sex: Female
  Weight: 76 kg

DRUGS (3)
  1. OXALIPLATIN [Suspect]
     Active Substance: OXALIPLATIN
     Indication: Product used for unknown indication
     Dosage: SECOND CHEMOTHERAPY CYCLE
     Route: 042
     Dates: start: 20230717, end: 20230717
  2. METHYLPREDNISOLONE [Concomitant]
     Active Substance: METHYLPREDNISOLONE
     Indication: Product used for unknown indication
     Dosage: STRENGTH: 120 MG; POWDER FOR PREFUSION SOLUTION
     Route: 042
     Dates: start: 20230717, end: 20230717
  3. ONDANSETRON [Concomitant]
     Active Substance: ONDANSETRON
     Indication: Product used for unknown indication
     Dosage: STRENGTH: 8 MG
     Route: 042
     Dates: start: 20230717, end: 20230717

REACTIONS (2)
  - Laryngospasm [Recovering/Resolving]
  - Oxygen saturation decreased [Recovering/Resolving]

NARRATIVE: CASE EVENT DATE: 20230717
